FAERS Safety Report 24866040 (Version 1)
Quarter: 2025Q1

REPORT INFORMATION
  Report Type: Spontaneous
  Country: US (occurrence: US)
  Receive Date: 20250121
  Receipt Date: 20250121
  Transmission Date: 20250408
  Serious: No
  Sender: CURRAX PHARMACEUTICALS
  Company Number: US-CURRAX PHARMACEUTICALS LLC-US-2023CUR002097

PATIENT
  Age: 30 Year
  Sex: Female

DRUGS (1)
  1. CONTRAVE [Suspect]
     Active Substance: BUPROPION HYDROCHLORIDE\NALTREXONE HYDROCHLORIDE
     Indication: Product used for unknown indication
     Dosage: STRENGTH: 8/90 MG, WEEK ONE DOSING (1 TABLET DAILY)
     Route: 048
     Dates: start: 202305, end: 202305

REACTIONS (2)
  - Headache [Unknown]
  - Nausea [Unknown]

NARRATIVE: CASE EVENT DATE: 20230501
